FAERS Safety Report 14551860 (Version 18)
Quarter: 2023Q1

REPORT INFORMATION
  Report Type: Spontaneous
  Country: US (occurrence: US)
  Receive Date: 20180220
  Receipt Date: 20230120
  Transmission Date: 20230417
  Serious: Yes (Hospitalization, Other)
  Sender: FDA-Public Use
  Company Number: US-PFIZER INC-2018067348

PATIENT
  Age: 77 Year
  Sex: Female

DRUGS (4)
  1. XELJANZ XR [Suspect]
     Active Substance: TOFACITINIB CITRATE
     Indication: Rheumatoid arthritis
     Dosage: 11 MG, 1X/DAY
     Route: 048
     Dates: start: 20180119
  2. XELJANZ XR [Suspect]
     Active Substance: TOFACITINIB CITRATE
     Indication: Osteoporosis
  3. XELJANZ XR [Suspect]
     Active Substance: TOFACITINIB CITRATE
     Indication: Fibromyalgia
  4. SULFAMETHOXAZOLE [Concomitant]
     Active Substance: SULFAMETHOXAZOLE
     Dosage: UNK, 2X/DAY

REACTIONS (28)
  - Oesophageal rupture [Unknown]
  - Road traffic accident [Unknown]
  - Limb injury [Unknown]
  - Pelvic fracture [Unknown]
  - Hip fracture [Unknown]
  - Croup infectious [Unknown]
  - Drug ineffective [Unknown]
  - Off label use [Unknown]
  - Product dose omission in error [Unknown]
  - Skin exfoliation [Recovering/Resolving]
  - Limb injury [Recovering/Resolving]
  - Influenza [Recovering/Resolving]
  - Peripheral swelling [Not Recovered/Not Resolved]
  - Joint swelling [Not Recovered/Not Resolved]
  - Musculoskeletal discomfort [Unknown]
  - Nasopharyngitis [Unknown]
  - Condition aggravated [Unknown]
  - Pain [Unknown]
  - Memory impairment [Unknown]
  - Dysstasia [Unknown]
  - Pain in extremity [Unknown]
  - Gait inability [Unknown]
  - Dyspnoea [Unknown]
  - Arthropathy [Unknown]
  - Discouragement [Unknown]
  - Nasopharyngitis [Unknown]
  - Cough [Unknown]
  - Hypoacusis [Unknown]

NARRATIVE: CASE EVENT DATE: 20180101
